FAERS Safety Report 18127527 (Version 1)
Quarter: 2020Q3

REPORT INFORMATION
  Report Type: Report from Study
  Country: US (occurrence: US)
  Receive Date: 20200810
  Receipt Date: 20200810
  Transmission Date: 20201103
  Serious: Yes (Other)
  Sender: FDA-Public Use
  Company Number: US-ADVANZ PHARMA-202008007662

PATIENT

DRUGS (7)
  1. MELOXICAM. [Concomitant]
     Active Substance: MELOXICAM
     Indication: PRODUCT USED FOR UNKNOWN INDICATION
     Dosage: UNK
  2. HYDROXYCHLOROQUINE [Suspect]
     Active Substance: HYDROXYCHLOROQUINE
     Dosage: UNK
     Route: 065
     Dates: start: 202007
  3. METOPROLOL. [Concomitant]
     Active Substance: METOPROLOL
     Indication: PRODUCT USED FOR UNKNOWN INDICATION
     Dosage: UNK
  4. HYDROXYCHLOROQUINE [Suspect]
     Active Substance: HYDROXYCHLOROQUINE
     Indication: PRODUCT USED FOR UNKNOWN INDICATION
     Dosage: UNK
     Route: 065
     Dates: end: 20200710
  5. RINVOQ [Suspect]
     Active Substance: UPADACITINIB
     Indication: RHEUMATOID ARTHRITIS
     Dosage: 15 MG,1 IN 1 D
     Route: 048
     Dates: start: 202004, end: 20200710
  6. RINVOQ [Suspect]
     Active Substance: UPADACITINIB
     Dosage: 15 MG,1 IN 1 D
     Route: 048
     Dates: start: 20200726
  7. HYDROCHLOROTHIAZIDE. [Concomitant]
     Active Substance: HYDROCHLOROTHIAZIDE
     Indication: PRODUCT USED FOR UNKNOWN INDICATION
     Dosage: UNK

REACTIONS (7)
  - Insomnia [Recovered/Resolved]
  - Anxiety [Recovered/Resolved]
  - Alopecia [Not Recovered/Not Resolved]
  - Sjogren^s syndrome [Unknown]
  - Immunosuppression [Not Recovered/Not Resolved]
  - COVID-19 [Recovered/Resolved]
  - Feeling hot [Recovering/Resolving]

NARRATIVE: CASE EVENT DATE: 2020
